FAERS Safety Report 9505359 (Version 1)
Quarter: 2013Q1

REPORT INFORMATION
  Report Type: Spontaneous
  Country: US (occurrence: None)
  Receive Date: 20130220
  Receipt Date: 20130220
  Transmission Date: 20140127
  Serious: No
  Sender: FDA-Public Use
  Company Number: 1000041872

PATIENT
  Age: 69 Year
  Sex: Female

DRUGS (7)
  1. VIIBRYD (VILAZODONE HYDROCHLORIDE) (10 MILIGRAM, TABLETS) [Suspect]
     Indication: DEPRESSION
     Route: 048
     Dates: start: 20130116, end: 20130116
  2. VIIBRYD (VILAZODONE HYDROCHLORIDE) (10 MILIGRAM, TABLETS) [Suspect]
     Indication: DEPRESSION
     Route: 048
     Dates: start: 20130117
  3. KLONOPIN [Concomitant]
  4. PRILOSEC (OMEPRAZOLE) (OMEPRAZOLE) [Concomitant]
  5. IBUPROFEN (IBUPROFEN) (IBUPROFEN) [Concomitant]
  6. LIPITOR (ATORVASTATIN CALCIUM) (ATORVASTATIN CALCIUM) [Concomitant]
  7. METOPROLOL (METOPROLOL) (METOPROLOL) [Concomitant]

REACTIONS (6)
  - Nausea [None]
  - Somnolence [None]
  - Agitation [None]
  - Feeling abnormal [None]
  - Tachyphrenia [None]
  - Terminal insomnia [None]
